FAERS Safety Report 8613934-9 (Version None)
Quarter: 2012Q3

REPORT INFORMATION
  Report Type: 
  Country: None (occurrence: None)
  Receive Date: 20120823
  Receipt Date: 20120810
  Transmission Date: 20120928
  Serious: Yes (Hospitalization, Other)
  Sender: FDA-Public Use
  Company Number: US-009507513-1202USA02808

PATIENT

DRUGS (8)
  1. FOSAMAX [Suspect]
     Dosage: 70 MG, QW
     Route: 048
     Dates: start: 20070901, end: 20071201
  2. FOSAMAX [Suspect]
     Indication: OSTEOPOROSIS
     Dosage: 70 MG, QW
     Route: 048
     Dates: start: 20000817, end: 20061201
  3. MK-9278 [Concomitant]
     Route: 048
  4. VITAMIN D [Concomitant]
  5. FOSAMAX [Suspect]
     Dosage: 70 MG, QW
     Route: 048
     Dates: start: 20091101, end: 20100101
  6. ACTONEL [Suspect]
     Indication: OSTEOPOROSIS
     Dosage: 35 MG, UNK
     Route: 048
     Dates: start: 20070801
  7. CALCIUM (UNSPECIFIED) [Concomitant]
  8. BONIVA [Suspect]
     Indication: OSTEOPOROSIS
     Dosage: 150 MG, UNK
     Route: 048
     Dates: start: 20080101, end: 20091001

REACTIONS (33)
  - SYNCOPE [None]
  - ONYCHOMYCOSIS [None]
  - ANXIETY [None]
  - VERTIGO POSITIONAL [None]
  - GLAUCOMA [None]
  - CATARACT OPERATION [None]
  - FEMORAL HERNIA, OBSTRUCTIVE [None]
  - ARTERIAL DISORDER [None]
  - PAIN IN EXTREMITY [None]
  - ECG SIGNS OF VENTRICULAR HYPERTROPHY [None]
  - HYPOACUSIS [None]
  - APHASIA [None]
  - SQUAMOUS CELL CARCINOMA [None]
  - EXOSTOSIS [None]
  - HYPERCHOLESTEROLAEMIA [None]
  - SLEEP DISORDER [None]
  - INSOMNIA [None]
  - FACIAL SPASM [None]
  - FEMUR FRACTURE [None]
  - FALL [None]
  - HYPERTENSION [None]
  - BURSITIS [None]
  - INTERVERTEBRAL DISC DISPLACEMENT [None]
  - FATIGUE [None]
  - ROAD TRAFFIC ACCIDENT [None]
  - BLOOD TESTOSTERONE INCREASED [None]
  - INTERVERTEBRAL DISC DISORDER [None]
  - ARTHRALGIA [None]
  - CHANGE OF BOWEL HABIT [None]
  - DEPRESSION [None]
  - SPINAL OSTEOARTHRITIS [None]
  - OSTEOARTHRITIS [None]
  - PNEUMONIA [None]
